FAERS Safety Report 6866534-5 (Version None)
Quarter: 2010Q3

REPORT INFORMATION
  Report Type: 
  Country: None (occurrence: None)
  Receive Date: 20100722
  Receipt Date: 20100709
  Transmission Date: 20110219
  Serious: Yes (Other)
  Sender: FDA-Public Use
  Company Number: PHHY2010US45783

PATIENT
  Sex: Female

DRUGS (4)
  1. RECLAST [Suspect]
     Dosage: UNK
     Dates: start: 20100215
  2. CALCIUM [Concomitant]
  3. VITAMIN D [Concomitant]
  4. VITAMIN B-12 [Concomitant]

REACTIONS (1)
  - SCIATIC NERVE NEUROPATHY [None]
